FAERS Safety Report 7236558-7 (Version None)
Quarter: 2011Q1

REPORT INFORMATION
  Report Type: 
  Country: None (occurrence: None)
  Receive Date: 20110120
  Receipt Date: 20110114
  Transmission Date: 20110831
  Serious: Yes (Other)
  Sender: FDA-Public Use
  Company Number: US-AMGEN-USASP2011002529

PATIENT

DRUGS (1)
  1. ENBREL [Suspect]
     Indication: RHEUMATOID ARTHRITIS
     Dosage: 25 MG, 2 TIMES/WK
     Dates: start: 19960101, end: 20050101

REACTIONS (6)
  - RHEUMATOID ARTHRITIS [None]
  - FLAT AFFECT [None]
  - THINKING ABNORMAL [None]
  - FIBROMYALGIA [None]
  - HYPERTHYROIDISM [None]
  - EMOTIONAL DISORDER [None]
